FAERS Safety Report 12259112 (Version 1)
Quarter: 2016Q2

REPORT INFORMATION
  Report Type: Spontaneous
  Country: US (occurrence: US)
  Receive Date: 20160412
  Receipt Date: 20160412
  Transmission Date: 20160815
  Serious: No
  Sender: FDA-Public Use
  Company Number: US-SA-2015SA064981

PATIENT
  Age: 77 Year
  Sex: Female

DRUGS (3)
  1. ALLEGRA [Suspect]
     Active Substance: FEXOFENADINE HYDROCHLORIDE
     Indication: URTICARIA
     Dosage: FREQUENCY: 3 TABLETS IN MORNING AND 3 TABLETSIN NIGHT, PATIENT TAKING THIS DAY FOR 3 DAYS
     Route: 048
  2. ALLEGRA [Suspect]
     Active Substance: FEXOFENADINE HYDROCHLORIDE
     Route: 048
  3. ALLEGRA [Suspect]
     Active Substance: FEXOFENADINE HYDROCHLORIDE
     Indication: URTICARIA
     Dosage: FREQUENCY: 3 TABLETS IN MORNING AND 3 TABLETSIN NIGHT, PATIENT TAKING THIS DAY FOR 3 DAYS
     Route: 048

REACTIONS (7)
  - Extra dose administered [Unknown]
  - Insomnia [Unknown]
  - Drug ineffective [Unknown]
  - Pain [Unknown]
  - Pruritus [Unknown]
  - Somnolence [Unknown]
  - Wrong drug administered [Unknown]
